FAERS Safety Report 8777201 (Version 1)
Quarter: 2012Q4

REPORT INFORMATION
  Report Type: 
  Country: US (occurrence: US)
  Receive Date: 20120911
  Receipt Date: 20120911
  Transmission Date: 20130627
  Serious: Yes (Other)
  Sender: FDA-Public Use
  Company Number: US-009507513-1010USA01859

PATIENT

DRUGS (4)
  1. ISENTRESS [Suspect]
     Indication: HIV INFECTION
     Dosage: 800 mg, qd
     Route: 048
  2. KALETRA [Suspect]
     Indication: HIV INFECTION
     Dosage: 4 DF, qd
     Route: 048
  3. BARACLUDE [Suspect]
     Indication: HIV INFECTION
     Dosage: 1 mg, qd
     Route: 048
  4. EPZICOM [Suspect]
     Indication: HIV INFECTION
     Dosage: 1 DF, qd
     Route: 048

REACTIONS (2)
  - Abortion induced [Unknown]
  - Exposure during pregnancy [Recovered/Resolved]
